FAERS Safety Report 10245892 (Version 3)
Quarter: 2014Q3

REPORT INFORMATION
  Report Type: Spontaneous
  Country: US (occurrence: US)
  Receive Date: 20140619
  Receipt Date: 20140815
  Transmission Date: 20150326
  Serious: Yes (Death, Hospitalization, Other)
  Sender: FDA-Public Use
  Company Number: US-AMGEN INC.-USASP2014044376

PATIENT
  Age: 94 Year
  Sex: Female
  Weight: 55.33 kg

DRUGS (7)
  1. PROLIA [Suspect]
     Active Substance: DENOSUMAB
     Route: 058
  2. PROLIA [Suspect]
     Active Substance: DENOSUMAB
     Indication: OSTEOPOROSIS POSTMENOPAUSAL
     Dosage: 60 MG/ML, Q6MO
     Route: 058
     Dates: start: 20110831
  3. FUROSEMIDE. [Concomitant]
     Active Substance: FUROSEMIDE
     Indication: BLOOD PRESSURE
     Dosage: 20 MG, QID
     Route: 048
  4. CARVEDIOL [Concomitant]
     Active Substance: CARVEDILOL
     Indication: BLOOD PRESSURE
     Dosage: 6.25 MG, BID
     Route: 048
  5. DILTIAZEM [Concomitant]
     Active Substance: DILTIAZEM
     Indication: BLOOD PRESSURE
     Dosage: 180 MG, QID
     Route: 048
  6. ATORVASTATIN [Concomitant]
     Active Substance: ATORVASTATIN
     Indication: LIPIDS INCREASED
     Dosage: 10 MG, QID
     Route: 048
  7. LISINOPRIL. [Concomitant]
     Active Substance: LISINOPRIL
     Indication: BLOOD PRESSURE
     Dosage: 20 MG, QID
     Route: 048

REACTIONS (7)
  - Cardiac tamponade [Unknown]
  - Acute respiratory failure [Unknown]
  - Cardiogenic shock [Unknown]
  - Ischaemic hepatitis [Unknown]
  - Hypertension [Unknown]
  - Aortic dissection rupture [Fatal]
  - Pericardial haemorrhage [Unknown]

NARRATIVE: CASE EVENT DATE: 20130916
